FAERS Safety Report 20195710 (Version 1)
Quarter: 2021Q4

REPORT INFORMATION
  Report Type: Report from Study
  Country: FR (occurrence: FR)
  Receive Date: 20211216
  Receipt Date: 20211216
  Transmission Date: 20220303
  Serious: Yes (Other)
  Sender: FDA-Public Use
  Company Number: FR-JNJFOC-20211053268

PATIENT
  Age: 66 Year
  Sex: Male

DRUGS (4)
  1. DEXAMETHASONE [Suspect]
     Active Substance: DEXAMETHASONE
     Indication: Plasma cell myeloma
     Dosage: 40 MILLIGRAM, QW (2 DOSES/WEEK AND 2 WEEKS/CYCLE)
     Route: 065
     Dates: end: 20181201
  2. MELPHALAN [Suspect]
     Active Substance: MELPHALAN
     Indication: Plasma cell myeloma
     Dosage: 400 MILLIGRAM
     Route: 065
     Dates: end: 20181201
  3. LENALIDOMIDE [Suspect]
     Active Substance: LENALIDOMIDE
     Indication: Plasma cell myeloma
     Dosage: 70 MILLIGRAM, QW (7 DOSES/WEEK AND 2 WEEKS/CYCLE)
     Route: 065
     Dates: end: 20181201
  4. VELCADE [Suspect]
     Active Substance: BORTEZOMIB
     Indication: Plasma cell myeloma
     Dosage: 6 MILLIGRAM, QW (2 DOSES/WEEK AND 2 WEEKS/CYCLE)
     Route: 065
     Dates: end: 20181201

REACTIONS (3)
  - Neuropathy peripheral [Unknown]
  - Off label use [Unknown]
  - Product use issue [Unknown]

NARRATIVE: CASE EVENT DATE: 20181201
